FAERS Safety Report 11873081 (Version 2)
Quarter: 2016Q1

REPORT INFORMATION
  Report Type: Report from Study
  Country: JP (occurrence: JP)
  Receive Date: 20151228
  Receipt Date: 20160224
  Transmission Date: 20160526
  Serious: Yes (Death, Hospitalization)
  Sender: FDA-Public Use
  Company Number: JP-EISAI MEDICAL RESEARCH-EC-2015-010494

PATIENT
  Age: 79 Year
  Sex: Male

DRUGS (4)
  1. RIVASTACH [Concomitant]
     Active Substance: RIVASTIGMINE
  2. ARICEPT [Suspect]
     Active Substance: DONEPEZIL HYDROCHLORIDE
     Indication: DEMENTIA ALZHEIMER^S TYPE
     Route: 048
     Dates: start: 20110805, end: 20110817
  3. WYPAX [Concomitant]
     Active Substance: LORAZEPAM
  4. ARICEPT [Suspect]
     Active Substance: DONEPEZIL HYDROCHLORIDE
     Route: 048
     Dates: start: 20110818, end: 20150110

REACTIONS (2)
  - Pneumonia [Fatal]
  - Dysphagia [Unknown]

NARRATIVE: CASE EVENT DATE: 201501
